FAERS Safety Report 9537136 (Version 1)
Quarter: 2013Q3

REPORT INFORMATION
  Report Type: Spontaneous
  Country: US (occurrence: None)
  Receive Date: 20130918
  Receipt Date: 20130918
  Transmission Date: 20140515
  Serious: No
  Sender: FDA-Public Use
  Company Number: None

PATIENT
  Age: 7 Year
  Sex: Male
  Weight: 31.75 kg

DRUGS (3)
  1. METHYLPHENIDATE [Suspect]
     Indication: ATTENTION DEFICIT/HYPERACTIVITY DISORDER
     Route: 048
     Dates: start: 20130702, end: 20130914
  2. PROAIR [Concomitant]
  3. CONCERTA [Concomitant]

REACTIONS (3)
  - Drug ineffective [None]
  - Therapeutic response unexpected with drug substitution [None]
  - Product substitution issue [None]
